FAERS Safety Report 9608415 (Version 1)
Quarter: 2013Q4

REPORT INFORMATION
  Report Type: Spontaneous
  Country: GB (occurrence: GB)
  Receive Date: 20131009
  Receipt Date: 20131009
  Transmission Date: 20140711
  Serious: Yes (Hospitalization)
  Sender: FDA-Public Use
  Company Number: GB-ASTRAZENECA-2013SE72846

PATIENT
  Age: 42 Year
  Sex: Male

DRUGS (1)
  1. QUETIAPINE [Suspect]
     Indication: AGITATED DEPRESSION
     Route: 048
     Dates: start: 201204, end: 20130905

REACTIONS (1)
  - Myocardial infarction [Recovering/Resolving]
